FAERS Safety Report 7913723-4 (Version None)
Quarter: 2011Q4

REPORT INFORMATION
  Report Type: 
  Country: None (occurrence: None)
  Receive Date: 20111115
  Receipt Date: 20111107
  Transmission Date: 20120403
  Serious: Yes (Hospitalization, Other)
  Sender: FDA-Public Use
  Company Number: US-JNJFOC-20111103507

PATIENT
  Sex: Female

DRUGS (1)
  1. RISPERDAL CONSTA [Suspect]
     Indication: PRODUCT USED FOR UNKNOWN INDICATION
     Route: 030

REACTIONS (5)
  - DIZZINESS [None]
  - PULSE ABNORMAL [None]
  - PALLOR [None]
  - BLOOD PRESSURE IMMEASURABLE [None]
  - INJECTION SITE CELLULITIS [None]
